FAERS Safety Report 7793931-6 (Version None)
Quarter: 2011Q4

REPORT INFORMATION
  Report Type: 
  Country: None (occurrence: None)
  Receive Date: 20111004
  Receipt Date: 20110921
  Transmission Date: 20120403
  Serious: No
  Sender: FDA-Public Use
  Company Number: US-BIOGENIDEC-2011BI032296

PATIENT
  Sex: Female

DRUGS (2)
  1. AVONEX [Concomitant]
     Indication: MULTIPLE SCLEROSIS
     Route: 030
  2. TYSABRI [Suspect]
     Indication: MULTIPLE SCLEROSIS
     Route: 042
     Dates: start: 20080923

REACTIONS (8)
  - SPINAL FRACTURE [None]
  - BACK PAIN [None]
  - MEMORY IMPAIRMENT [None]
  - BALANCE DISORDER [None]
  - WRIST FRACTURE [None]
  - POOR VENOUS ACCESS [None]
  - FALL [None]
  - UPPER LIMB FRACTURE [None]
